FAERS Safety Report 7559444-1 (Version None)
Quarter: 2011Q2

REPORT INFORMATION
  Report Type: 
  Country: None (occurrence: None)
  Receive Date: 20110621
  Receipt Date: 20110614
  Transmission Date: 20111010
  Serious: Yes (Other)
  Sender: FDA-Public Use
  Company Number: FR-AMGEN-FRASP2011030354

PATIENT
  Sex: Female

DRUGS (1)
  1. ARANESP [Suspect]
     Indication: APLASIA PURE RED CELL

REACTIONS (1)
  - THERAPEUTIC RESPONSE DECREASED [None]
